FAERS Safety Report 9717482 (Version 1)
Quarter: 2013Q4

REPORT INFORMATION
  Report Type: Spontaneous
  Country: US (occurrence: US)
  Receive Date: 20131127
  Receipt Date: 20131127
  Transmission Date: 20140711
  Serious: Yes (Other)
  Sender: FDA-Public Use
  Company Number: US-GILEAD-2009-0019850

PATIENT
  Age: 93 Year
  Sex: Male

DRUGS (24)
  1. LETAIRIS [Suspect]
     Indication: PULMONARY ARTERIAL HYPERTENSION
     Route: 048
     Dates: start: 20081103, end: 20090107
  2. SPIRIVA [Concomitant]
  3. AZMACORT [Concomitant]
  4. MAXAIR [Concomitant]
  5. PEPCID [Concomitant]
  6. GLUCOSAMINE [Concomitant]
  7. THYROID [Concomitant]
  8. NORVASC [Concomitant]
  9. FUROSEMIDE [Concomitant]
  10. AVODART [Concomitant]
  11. FLOMAX [Concomitant]
  12. GLIPIZIDE [Concomitant]
  13. ASPIRIN [Concomitant]
  14. TYLENOL [Concomitant]
  15. ALEVE [Concomitant]
  16. FERROUS SULFATE [Concomitant]
  17. GLUCOSAMINE [Concomitant]
  18. STOOL SOFTENER [Concomitant]
  19. ALFALFA [Concomitant]
  20. OCUVITE [Concomitant]
  21. CENTRUM [Concomitant]
  22. VITAMIN D [Concomitant]
  23. CALCIUM [Concomitant]
  24. VITAMIN B-12 [Concomitant]

REACTIONS (2)
  - Dyspnoea [Recovering/Resolving]
  - Oedema [Recovering/Resolving]
